FAERS Safety Report 14683948 (Version 2)
Quarter: 2018Q2

REPORT INFORMATION
  Report Type: Spontaneous
  Country: JP (occurrence: JP)
  Receive Date: 20180327
  Receipt Date: 20180420
  Transmission Date: 20180711
  Serious: Yes (Hospitalization)
  Sender: FDA-Public Use
  Company Number: JP-BAYER-2018-051989

PATIENT
  Age: 73 Year
  Sex: Female
  Weight: 42 kg

DRUGS (12)
  1. AMLODIPINE [Concomitant]
     Active Substance: AMLODIPINE BESYLATE
     Indication: CARDIOVASCULAR EVENT PROPHYLAXIS
     Dosage: DAILY DOSE 5 MG
     Route: 048
     Dates: start: 20180302
  2. DOMPERIDONE [Concomitant]
     Active Substance: DOMPERIDONE
     Dosage: DAILY DOSE 30 MG
     Route: 048
  3. MAGNESIUM OXIDE. [Concomitant]
     Active Substance: MAGNESIUM OXIDE
     Dosage: DAILY DOSE 2 G
     Route: 048
  4. PROTECADIN [Concomitant]
     Active Substance: LAFUTIDINE
     Dosage: DAILY DOSE 20 MG
     Route: 048
  5. BAYASPIRIN 100 MG [Concomitant]
     Active Substance: ASPIRIN
     Dosage: 100 MG, QD
     Route: 048
  6. DAIKENTYUTO [Concomitant]
     Active Substance: HERBALS
     Dosage: DAILY DOSE 7.5 G
     Route: 048
  7. STIVARGA [Suspect]
     Active Substance: REGORAFENIB
     Indication: COLORECTAL CANCER RECURRENT
     Dosage: 160 MG, QD, 3 WEEKS ON 1 WEEK OFF
     Route: 048
     Dates: start: 20180216, end: 20180228
  8. LOBU [Concomitant]
     Active Substance: LOBUCAVIR
     Dosage: DAILY DOSE 120 MG
     Route: 048
  9. OXYCONTIN [Concomitant]
     Active Substance: OXYCODONE HYDROCHLORIDE
     Dosage: DAILY DOSE 10 MG
     Route: 048
  10. ADALAT 5 MG [Concomitant]
     Indication: CARDIOVASCULAR EVENT PROPHYLAXIS
     Dosage: 5 MG, QD
     Route: 048
     Dates: start: 20180301, end: 20180302
  11. STIVARGA [Suspect]
     Active Substance: REGORAFENIB
     Indication: COLORECTAL CANCER RECURRENT
     Dosage: 120 MG, QD, 3 WEEKS ON 1 WEEK OFF
     Route: 048
     Dates: start: 20180330
  12. TRAMADOL HYDROCHLORIDE. [Concomitant]
     Active Substance: TRAMADOL HYDROCHLORIDE
     Dosage: DAILY DOSE 100 MG
     Route: 048

REACTIONS (2)
  - Thrombocytopenia [Recovered/Resolved]
  - Disseminated intravascular coagulation [Recovered/Resolved]

NARRATIVE: CASE EVENT DATE: 20180302
